FAERS Safety Report 22032871 (Version 1)
Quarter: 2023Q1

REPORT INFORMATION
  Report Type: Spontaneous
  Country: US (occurrence: None)
  Receive Date: 20230222
  Receipt Date: 20230222
  Transmission Date: 20230418
  Serious: Yes (Death)
  Sender: FDA-Public Use
  Company Number: None

PATIENT
  Age: 64 Year
  Sex: Male
  Weight: 101.07 kg

DRUGS (10)
  1. PLUVICTO [Suspect]
     Active Substance: LUTETIUM LU-177 VIPIVOTIDE TETRAXETAN
     Indication: Hormone-refractory prostate cancer
     Dosage: OTHER FREQUENCY : EVERY 6 WEEKS;?
     Route: 042
  2. Morphine ER [Concomitant]
  3. CELECOXIB [Concomitant]
  4. ESCITALOPRAM [Concomitant]
  5. IBUPROFEN [Concomitant]
  6. LACTULOSE [Concomitant]
  7. ONDANSETRON [Concomitant]
  8. SIMVASTATIN [Concomitant]
  9. OMEPRAZOLE [Concomitant]
  10. metoprolol ER [Concomitant]

REACTIONS (6)
  - Disease progression [None]
  - Prostatic specific antigen increased [None]
  - Unresponsive to stimuli [None]
  - Dyspnoea exertional [None]
  - Cardiac disorder [None]
  - Back pain [None]

NARRATIVE: CASE EVENT DATE: 20230221
